FAERS Safety Report 8290769-0 (Version None)
Quarter: 2012Q2

REPORT INFORMATION
  Report Type: 
  Country: None (occurrence: None)
  Receive Date: 20120412
  Receipt Date: 20120412
  Transmission Date: 20120825
  Serious: Yes (Other)
  Sender: FDA-Public Use
  Company Number: None

PATIENT
  Sex: Male
  Weight: 21.2 kg

DRUGS (1)
  1. LEVETIRACETAM [Suspect]
     Indication: EPILEPSY
     Dosage: 10.5 ML BID G-TUBE LONG TERM : YEARS

REACTIONS (1)
  - CONVULSION [None]
